FAERS Safety Report 7557707-7 (Version None)
Quarter: 2011Q2

REPORT INFORMATION
  Report Type: 
  Country: None (occurrence: None)
  Receive Date: 20110620
  Receipt Date: 20110612
  Transmission Date: 20111010
  Serious: Yes (Hospitalization, Other)
  Sender: FDA-Public Use
  Company Number: DE-JNJFOC-20110509580

PATIENT
  Sex: Female
  Weight: 47 kg

DRUGS (11)
  1. AMITRIPTYLINE HCL [Suspect]
     Dates: start: 20110209
  2. TAPENTADOL [Suspect]
     Dates: start: 20110209
  3. TAPENTADOL [Suspect]
     Dates: start: 20110209
  4. TAPENTADOL [Suspect]
     Indication: POST-TRAUMATIC PAIN
     Dates: start: 20110209
  5. TAPENTADOL [Suspect]
     Indication: COMPLEX REGIONAL PAIN SYNDROME
     Dates: start: 20110105, end: 20110105
  6. TAPENTADOL [Suspect]
     Indication: PAIN
     Dates: start: 20110105, end: 20110105
  7. LAXATIVES [Concomitant]
  8. TAPENTADOL [Suspect]
     Dates: start: 20110105, end: 20110105
  9. AMITRIPTYLINE HCL [Suspect]
     Dates: start: 20100101
  10. MORPHINE [Concomitant]
  11. AMITRIPTYLINE HCL [Suspect]
     Indication: NEURALGIA

REACTIONS (8)
  - SEROTONIN SYNDROME [None]
  - TREMOR [None]
  - PYREXIA [None]
  - HEART RATE INCREASED [None]
  - VOMITING [None]
  - RESTLESSNESS [None]
  - NAUSEA [None]
  - TACHYCARDIA [None]
